FAERS Safety Report 13081371 (Version 3)
Quarter: 2017Q2

REPORT INFORMATION
  Report Type: Spontaneous
  Country: US (occurrence: US)
  Receive Date: 20170103
  Receipt Date: 20170421
  Transmission Date: 20170830
  Serious: No
  Sender: FDA-Public Use
  Company Number: US-PFIZER INC-2016596468

PATIENT
  Age: 59 Year
  Sex: Female

DRUGS (2)
  1. IBRANCE [Suspect]
     Active Substance: PALBOCICLIB
     Indication: BREAST CANCER FEMALE
     Dosage: 125 MG, CYCLIC (TAKE 21 DAYS 7 DAYS OFF)
  2. ANASTROZOLE. [Concomitant]
     Active Substance: ANASTROZOLE
     Dosage: UNK

REACTIONS (5)
  - Malaise [Recovered/Resolved]
  - Asthenia [Recovered/Resolved]
  - Crying [Recovered/Resolved]
  - Insomnia [Not Recovered/Not Resolved]
  - Neoplasm progression [Not Recovered/Not Resolved]

NARRATIVE: CASE EVENT DATE: 2016
